FAERS Safety Report 20860323 (Version 2)
Quarter: 2022Q3

REPORT INFORMATION
  Report Type: Spontaneous
  Country: SE (occurrence: SE)
  Receive Date: 20220523
  Receipt Date: 20220729
  Transmission Date: 20221027
  Serious: Yes (Other)
  Sender: FDA-Public Use
  Company Number: SE-TAKEDA-2022TUS032968

PATIENT
  Age: 62 Year
  Sex: Female
  Weight: 49 kg

DRUGS (1)
  1. KIOVIG [Suspect]
     Active Substance: HUMAN IMMUNOGLOBULIN G
     Indication: Selective IgG subclass deficiency
     Dosage: 15 GRAM, 1/WEEK
     Route: 042
     Dates: start: 2015, end: 20220525

REACTIONS (7)
  - Transplant [Unknown]
  - Lip pain [Unknown]
  - Swollen tongue [Unknown]
  - Blood immunoglobulin G increased [Unknown]
  - Pain [Unknown]
  - Myalgia [Recovering/Resolving]
  - Oral discomfort [Recovering/Resolving]

NARRATIVE: CASE EVENT DATE: 20220301
